FAERS Safety Report 24771940 (Version 1)
Quarter: 2024Q4

REPORT INFORMATION
  Report Type: Spontaneous
  Country: CH (occurrence: CH)
  Receive Date: 20241224
  Receipt Date: 20241224
  Transmission Date: 20250115
  Serious: Yes (Hospitalization, Other)
  Sender: BRISTOL-MYERS SQUIBB COMPANY
  Company Number: None

PATIENT
  Age: 94 Year
  Sex: Female

DRUGS (11)
  1. APIXABAN [Suspect]
     Active Substance: APIXABAN
     Indication: Product used for unknown indication
     Dates: start: 20241019, end: 20241205
  2. ATORVASTATIN [Suspect]
     Active Substance: ATORVASTATIN
     Indication: Product used for unknown indication
     Dates: start: 20241018, end: 20241203
  3. FOLIC ACID [Concomitant]
     Active Substance: FOLIC ACID
     Indication: Product used for unknown indication
     Dates: start: 20241025
  4. METOPROLOL SUCCINATE [Concomitant]
     Active Substance: METOPROLOL SUCCINATE
     Indication: Product used for unknown indication
     Dosage: 25 MG IN THE MORNING, LONG-TERM, ALREADY PRESENT MAY 2024
  5. MIRTAZAPINE [Concomitant]
     Active Substance: MIRTAZAPINE
     Indication: Product used for unknown indication
     Dosage: 15 MG IN THE EVENING, LONG-TERM, ALREADY PRESENT ON JUL-2023
  6. QUETIAPINE [Concomitant]
     Active Substance: QUETIAPINE
     Indication: Product used for unknown indication
     Dosage: 5 MG IN THE EVENING, LONG-TERM, ALREADY PRESENT OCT-2023
  7. TORSEMIDE [Concomitant]
     Active Substance: TORSEMIDE
     Indication: Product used for unknown indication
     Dosage: 5 MG IN THE MORNING, IN THE LONG TERM, ALREADY PRESENT IN APRIL 2024
  8. TAFLUPROST;TIMOLOL [Concomitant]
     Indication: Product used for unknown indication
     Dosage: 15 UG/ML+5UG/ML IN THE MORNING IN THE 2 EYES, LONG-TERM, ALREADY PRESENT SINCE AUGUST 2024
  9. CALCIUM\VITAMIN D [Concomitant]
     Active Substance: CALCIUM\VITAMIN D
     Indication: Product used for unknown indication
     Dosage: 1000MG/800IU 1 CP AT LUNCHTIME, LONG-TERM, ALREADY PRESENT IN MAY 2024
  10. POLYETHYLENE GLYCOLS [Concomitant]
     Active Substance: POLYETHYLENE GLYCOLS
     Indication: Product used for unknown indication
     Dosage: 1 TIME A DAY, LONG-TERM, ALREADY PRESENT MAY 2024
  11. SODIUM PICOSULFATE [Concomitant]
     Active Substance: SODIUM PICOSULFATE
     Indication: Product used for unknown indication
     Dosage: 2X/DAY LONG-TERM, ALREADY PRESENT MAY 2024

REACTIONS (4)
  - Mixed liver injury [Recovered/Resolved]
  - Rhabdomyolysis [Recovering/Resolving]
  - Confusional state [Unknown]
  - Fall [Unknown]

NARRATIVE: CASE EVENT DATE: 20241203
